FAERS Safety Report 22032925 (Version 1)
Quarter: 2023Q1

REPORT INFORMATION
  Report Type: Report from Study
  Country: US (occurrence: US)
  Receive Date: 20230224
  Receipt Date: 20230224
  Transmission Date: 20230418
  Serious: Yes (Death, Hospitalization)
  Sender: FDA-Public Use
  Company Number: US-MYLANLABS-2023M1018989

PATIENT
  Age: 61 Year
  Sex: Female

DRUGS (3)
  1. FOLIC ACID [Suspect]
     Active Substance: FOLIC ACID
     Indication: Toxicity to various agents
     Dosage: UNK
     Route: 065
  2. THIAMINE [Suspect]
     Active Substance: THIAMINE
     Indication: Toxicity to various agents
     Dosage: UNK
     Route: 065
  3. FLUMAZENIL [Suspect]
     Active Substance: FLUMAZENIL
     Indication: Toxicity to various agents
     Dosage: UNK
     Route: 065

REACTIONS (2)
  - Drug ineffective for unapproved indication [Fatal]
  - Off label use [Unknown]
